FAERS Safety Report 5993507-7 (Version None)
Quarter: 2008Q4

REPORT INFORMATION
  Report Type: 
  Country: None (occurrence: None)
  Receive Date: 20081212
  Receipt Date: 20081208
  Transmission Date: 20090506
  Serious: Yes (Other)
  Sender: FDA-Public Use
  Company Number: US-ASTRAZENECA-2008UW27206

PATIENT
  Age: 50 Year
  Sex: Female
  Weight: 75.7 kg

DRUGS (4)
  1. SEROQUEL [Suspect]
     Indication: DEPRESSION
     Dosage: 100 MG MORNING AND 200 MG AT BEDTIME
     Route: 048
  2. CLONOPIN [Concomitant]
  3. EFFEXOR [Concomitant]
  4. XANAX [Concomitant]

REACTIONS (1)
  - CHOLELITHIASIS [None]
